FAERS Safety Report 24371446 (Version 1)
Quarter: 2024Q3

REPORT INFORMATION
  Report Type: Spontaneous
  Country: US (occurrence: None)
  Receive Date: 20240926
  Receipt Date: 20240926
  Transmission Date: 20241016
  Serious: No
  Sender: Public
  Company Number: None

PATIENT
  Age: 51 Year
  Sex: Female

DRUGS (6)
  1. BOTOX [Suspect]
     Active Substance: ONABOTULINUMTOXINA
     Indication: Migraine
     Dosage: OTHER STRENGTH : 200 UNIT;?OTHER QUANTITY : 200 UNITS;?OTHER FREQUENCY : EVERY 90 DAYS;?
     Dates: start: 20240409
  2. AZELAIC ACID [Concomitant]
     Active Substance: AZELAIC ACID
  3. CYCLOBENZAPR [Concomitant]
  4. MORPHINE SULFATE [Concomitant]
     Active Substance: MORPHINE SULFATE
  5. ONDANSETRON [Concomitant]
     Active Substance: ONDANSETRON
  6. SOD SUL/SULF LIQ 9-4.5% [Concomitant]

REACTIONS (1)
  - Spinal osteoarthritis [None]

NARRATIVE: CASE EVENT DATE: 20240401
